FAERS Safety Report 10245100 (Version 1)
Quarter: 2014Q2

REPORT INFORMATION
  Report Type: Spontaneous
  Country: US (occurrence: US)
  Receive Date: 20140618
  Receipt Date: 20140618
  Transmission Date: 20141212
  Serious: No
  Sender: FDA-Public Use
  Company Number: US-GALDERMA-US14001264

PATIENT
  Age: 50 Year
  Sex: Female

DRUGS (10)
  1. MIRVASO (BRIMONIDINE) TOPICAL GEL, 0.33% [Suspect]
     Indication: ROSACEA
     Dosage: 0.33%
     Route: 061
     Dates: start: 20140305, end: 20140320
  2. PURPOSE CLEANSER [Concomitant]
     Indication: THERAPEUTIC SKIN CARE TOPICAL
     Route: 061
  3. PURPOSE MOISTURIZER [Concomitant]
     Indication: DRY SKIN PROPHYLAXIS
     Route: 061
     Dates: start: 201402
  4. OYSTER SHELL CALCIUM [Concomitant]
     Dosage: 1000 MG
     Route: 048
     Dates: start: 2012
  5. VITAMIN D3 [Concomitant]
     Dosage: 2000 IU
     Route: 048
     Dates: start: 2012
  6. FISH OIL [Concomitant]
     Dosage: 1000 MG
     Route: 048
     Dates: start: 2012
  7. GLUCOSAMINE [Concomitant]
     Dosage: 1500 MG
     Route: 048
  8. CHONDROITIN [Concomitant]
     Dosage: 1200 MG
     Route: 048
  9. SERTRALINE [Concomitant]
     Dosage: 50 MG
     Route: 048
  10. IBUPROFEN [Concomitant]
     Dosage: 1-2 TABS
     Route: 048

REACTIONS (6)
  - Condition aggravated [Recovered/Resolved]
  - Skin irritation [Recovered/Resolved]
  - Pain of skin [Recovered/Resolved]
  - Skin burning sensation [Recovered/Resolved]
  - Erythema [Recovered/Resolved]
  - Skin warm [Recovered/Resolved]
